FAERS Safety Report 5508605-1 (Version None)
Quarter: 2007Q4

REPORT INFORMATION
  Report Type: 
  Country: None (occurrence: None)
  Receive Date: 20071031
  Receipt Date: 20070725
  Transmission Date: 20080405
  Serious: No
  Sender: FDA-Public Use
  Company Number: 2007PV033184

PATIENT
  Age: 29 Year
  Sex: Female

DRUGS (9)
  1. SYMLIN [Suspect]
     Indication: METABOLIC SYNDROME
     Dosage: 150 MCG;TID;SC : 120 MCG;TID;SC : 90 MCG; SC : SC : SC
     Route: 058
     Dates: start: 20061201, end: 20070101
  2. SYMLIN [Suspect]
     Indication: METABOLIC SYNDROME
     Dosage: 150 MCG;TID;SC : 120 MCG;TID;SC : 90 MCG; SC : SC : SC
     Route: 058
     Dates: start: 20070101, end: 20070101
  3. SYMLIN [Suspect]
     Indication: METABOLIC SYNDROME
     Dosage: 150 MCG;TID;SC : 120 MCG;TID;SC : 90 MCG; SC : SC : SC
     Route: 058
     Dates: start: 20070101, end: 20070101
  4. SYMLIN [Suspect]
     Indication: METABOLIC SYNDROME
     Dosage: 150 MCG;TID;SC : 120 MCG;TID;SC : 90 MCG; SC : SC : SC
     Route: 058
     Dates: start: 20070101, end: 20070101
  5. SYMLIN [Suspect]
     Indication: METABOLIC SYNDROME
     Dosage: 150 MCG;TID;SC : 120 MCG;TID;SC : 90 MCG; SC : SC : SC
     Route: 058
     Dates: start: 20070701
  6. LEVOXYL [Concomitant]
  7. ACIPHEX [Concomitant]
  8. PHENERGAN HCL [Concomitant]
  9. PHENTERMINE [Concomitant]

REACTIONS (3)
  - NAUSEA [None]
  - NERVOUSNESS [None]
  - WEIGHT INCREASED [None]
